FAERS Safety Report 4814766-X (Version None)
Quarter: 2005Q4

REPORT INFORMATION
  Report Type: 
  Country: None (occurrence: None)
  Receive Date: 20051028
  Receipt Date: 20041223
  Transmission Date: 20060501
  Serious: No
  Sender: FDA-Public Use
  Company Number: US-GLAXOSMITHKLINE-A0538507A

PATIENT
  Age: 81 Year
  Sex: Male

DRUGS (10)
  1. ADVAIR DISKUS 100/50 [Suspect]
     Indication: CHRONIC OBSTRUCTIVE PULMONARY DISEASE
     Dosage: 1PUFF TWICE PER DAY
     Route: 055
     Dates: start: 20010101
  2. HYDROCHLOROTHIAZIDE [Concomitant]
  3. ARICEPT [Concomitant]
  4. VITAMIN E [Concomitant]
  5. HYDROXYZINE [Concomitant]
  6. XALATAN [Concomitant]
  7. ASPIRIN [Concomitant]
  8. SENNA [Concomitant]
  9. QUININE SULFATE [Concomitant]
  10. EFUDEX [Concomitant]

REACTIONS (3)
  - DYSPNOEA [None]
  - PHARMACEUTICAL PRODUCT COMPLAINT [None]
  - RHINITIS [None]
